FAERS Safety Report 10422815 (Version 1)
Quarter: 2014Q3

REPORT INFORMATION
  Report Type: Spontaneous
  Country: US (occurrence: US)
  Receive Date: 20140902
  Receipt Date: 20140902
  Transmission Date: 20150326
  Serious: Yes (Other)
  Sender: FDA-Public Use
  Company Number: 2014SP004837

PATIENT

DRUGS (6)
  1. CORTISONE [Concomitant]
     Active Substance: CORTISONE\HYDROCORTISONE
  2. CALCIUM + D3 /01483701/ [Concomitant]
  3. CIMZIA [Concomitant]
     Active Substance: CERTOLIZUMAB PEGOL
  4. FOLIC ACID. [Concomitant]
     Active Substance: FOLIC ACID
  5. METHOTREXATE [Suspect]
     Active Substance: METHOTREXATE
     Indication: PRODUCT USED FOR UNKNOWN INDICATION
  6. CELEBREX [Suspect]
     Active Substance: CELECOXIB
     Indication: PRODUCT USED FOR UNKNOWN INDICATION

REACTIONS (11)
  - Apnoea [Unknown]
  - Sjogren^s syndrome [Unknown]
  - Dry mouth [Unknown]
  - Oropharyngeal pain [Unknown]
  - Pruritus [Unknown]
  - Disturbance in attention [Unknown]
  - Dry skin [Unknown]
  - Arthralgia [Unknown]
  - Sleep disorder [Unknown]
  - Fatigue [Unknown]
  - Snoring [Unknown]
